FAERS Safety Report 4895879-3 (Version None)
Quarter: 2006Q1

REPORT INFORMATION
  Report Type: 
  Country: None (occurrence: None)
  Receive Date: 20060125
  Receipt Date: 20060113
  Transmission Date: 20060701
  Serious: Yes (Life-Threatening, Hospitalization)
  Sender: FDA-Public Use
  Company Number: 2006005579

PATIENT
  Age: 35 Year
  Sex: Female

DRUGS (1)
  1. MAGNEX                (SULBACTAM, CEFOPERAZONE) [Suspect]
     Indication: PYREXIA
     Dosage: 1 GRAM (1 GRAM, 1 DOSE), INTRAVENOUS
     Route: 042
     Dates: start: 20050101

REACTIONS (3)
  - ABDOMINAL PAIN UPPER [None]
  - ANAPHYLACTIC SHOCK [None]
  - BACK PAIN [None]
